FAERS Safety Report 9118287 (Version 1)
Quarter: 2013Q1

REPORT INFORMATION
  Report Type: Spontaneous
  Country: US (occurrence: None)
  Receive Date: 20130221
  Receipt Date: 20130221
  Transmission Date: 20140127
  Serious: Yes (Life-Threatening, Hospitalization, Disabling)
  Sender: FDA-Public Use
  Company Number: None

PATIENT
  Age: 66 Year
  Sex: Female
  Weight: 56.25 kg

DRUGS (1)
  1. MELOXICAM 15MG LUPIN 68180050201 [Suspect]
     Indication: ARTHRITIS
     Dosage: 1 TABLET  DAILY
     Dates: start: 20121004, end: 20121025

REACTIONS (6)
  - Dizziness [None]
  - Faeces discoloured [None]
  - Dyspnoea [None]
  - Haemoglobin decreased [None]
  - Oxygen saturation decreased [None]
  - Ulcer haemorrhage [None]
